FAERS Safety Report 11176913 (Version 1)
Quarter: 2015Q2

REPORT INFORMATION
  Report Type: Spontaneous
  Country: US (occurrence: None)
  Receive Date: 20150515
  Receipt Date: 20150515
  Transmission Date: 20150821
  Serious: Yes (Other)
  Sender: FDA-Public Use
  Company Number: 2015004225

PATIENT
  Age: 47 Year
  Sex: Female

DRUGS (1)
  1. CIMZIA [Suspect]
     Active Substance: CERTOLIZUMAB PEGOL
     Indication: PSORIATIC ARTHROPATHY
     Dosage: EV 2 WEEKS
     Route: 058
     Dates: start: 20150206

REACTIONS (6)
  - Diarrhoea [None]
  - Gastroenteritis viral [None]
  - Vomiting [None]
  - Injection site swelling [None]
  - Pyrexia [None]
  - Skin discolouration [None]

NARRATIVE: CASE EVENT DATE: 20150207
